FAERS Safety Report 5794893-3 (Version None)
Quarter: 2008Q2

REPORT INFORMATION
  Report Type: 
  Country: None (occurrence: None)
  Receive Date: 20080630
  Receipt Date: 20080619
  Transmission Date: 20081010
  Serious: Yes (Other)
  Sender: FDA-Public Use
  Company Number: US-ABBOTT-08P-163-0451681-00

PATIENT
  Sex: Female
  Weight: 48.124 kg

DRUGS (21)
  1. HUMIRA [Suspect]
     Indication: PSORIATIC ARTHROPATHY
     Dosage: PEN
     Route: 058
     Dates: end: 20071201
  2. HUMIRA [Suspect]
     Indication: RHEUMATOID ARTHRITIS
     Dosage: PEN
     Route: 058
     Dates: start: 20080101
  3. HUMIRA [Suspect]
     Dosage: SYRINGE
     Route: 058
     Dates: start: 20040101
  4. HUMIRA [Suspect]
     Route: 058
     Dates: start: 20030101, end: 20031201
  5. HUMIRA [Suspect]
     Dosage: PRE-FILLED SYRINGES
     Route: 058
     Dates: start: 20031201
  6. HUMIRA [Suspect]
     Dosage: PENS
  7. METHOTREXATE [Concomitant]
     Indication: PSORIATIC ARTHROPATHY
     Dosage: 7.5 WEEKLY
     Route: 048
     Dates: start: 20080514
  8. METHOTREXATE [Concomitant]
     Indication: RHEUMATOID ARTHRITIS
  9. FOLIC ACID [Concomitant]
     Indication: PSORIATIC ARTHROPATHY
     Route: 048
     Dates: start: 20080506
  10. FOLIC ACID [Concomitant]
     Indication: RHEUMATOID ARTHRITIS
  11. OLUX FOAM [Concomitant]
     Indication: PSORIASIS
     Route: 061
     Dates: start: 20080619
  12. TYLOX [Concomitant]
     Indication: PAIN
     Route: 048
  13. GABAPENTIN [Concomitant]
     Indication: FIBROMYALGIA
     Route: 048
  14. METOPROLOL SUCCINATE EXTENDED RELEASE [Concomitant]
     Indication: HYPERTENSION
     Route: 048
  15. ALENDRONATE SODIUM [Concomitant]
     Indication: MINERAL SUPPLEMENTATION
     Route: 048
     Dates: start: 20080201
  16. TIZANIDINE HCL [Concomitant]
     Indication: MUSCLE RELAXANT THERAPY
     Dosage: FOR SLEEP
     Route: 048
  17. ESZOPICLONE [Concomitant]
     Indication: SLEEP DISORDER THERAPY
     Route: 048
  18. LANSOPRAZOLE [Concomitant]
     Indication: GASTROOESOPHAGEAL REFLUX DISEASE
     Route: 048
  19. LIDOCAINE [Concomitant]
     Indication: BACK PAIN
     Dosage: PATCHES
     Route: 061
  20. CLOBETASOL PROMBINATE [Concomitant]
     Indication: PSORIASIS
     Route: 061
     Dates: start: 20080201
  21. DESONIDANE CREAM [Concomitant]
     Indication: PSORIASIS
     Route: 061
     Dates: start: 20080201

REACTIONS (7)
  - ARTHRALGIA [None]
  - DRUG DOSE OMISSION [None]
  - INFLUENZA [None]
  - PSORIASIS [None]
  - PSORIATIC ARTHROPATHY [None]
  - RHEUMATOID ARTHRITIS [None]
  - SURGERY [None]
